FAERS Safety Report 5105133-2 (Version None)
Quarter: 2006Q3

REPORT INFORMATION
  Report Type: 
  Country: None (occurrence: None)
  Receive Date: 20060914
  Receipt Date: 20060519
  Transmission Date: 20061208
  Serious: Yes (Other)
  Sender: FDA-Public Use
  Company Number: IE-MERCK-0605GBR00094

PATIENT
  Age: 37 Year
  Sex: Female

DRUGS (4)
  1. SINGULAIR [Suspect]
     Indication: BRONCHIOLITIS
     Route: 048
     Dates: start: 20060323, end: 20060401
  2. CLARITHROMYCIN [Suspect]
     Route: 065
     Dates: start: 20060301, end: 20060401
  3. DEXAMETHASONE [Concomitant]
     Route: 065
  4. AZITHROMYCIN [Suspect]
     Route: 065

REACTIONS (5)
  - DRUG INTERACTION [None]
  - HYPOCALCAEMIA [None]
  - MYALGIA [None]
  - PARAESTHESIA [None]
  - PHARYNGITIS [None]
